FAERS Safety Report 5105228-3 (Version None)
Quarter: 2006Q3

REPORT INFORMATION
  Report Type: 
  Country: None (occurrence: None)
  Receive Date: 20060911
  Receipt Date: 20060831
  Transmission Date: 20061208
  Serious: Yes (Other)
  Sender: FDA-Public Use
  Company Number: 229088

PATIENT
  Age: 80 Year
  Sex: Male

DRUGS (5)
  1. AVASTIN [Suspect]
     Indication: MACULAR DEGENERATION
     Dosage: 2.5 MG, SINGLE, INTRAVITREAL
     Route: 050
     Dates: start: 20060811, end: 20060811
  2. ASPIRIN [Concomitant]
  3. ACTOS [Concomitant]
  4. VITAMINS (VITAMINS NOS) [Concomitant]
  5. MEDICATION [Concomitant]

REACTIONS (1)
  - RETINAL ARTERY OCCLUSION [None]
